FAERS Safety Report 19474710 (Version 1)
Quarter: 2021Q2

REPORT INFORMATION
  Report Type: Spontaneous
  Country: US (occurrence: US)
  Receive Date: 20210630
  Receipt Date: 20210630
  Transmission Date: 20210717
  Serious: No
  Sender: FDA-Public Use
  Company Number: US-009507513-2106USA000827

PATIENT
  Sex: Female

DRUGS (3)
  1. NOXAFIL [Suspect]
     Active Substance: POSACONAZOLE
     Indication: PNEUMONIA
     Dosage: 4 TABLETS DAILY FOR A TOTAL DAILY DOSE OF 400MG
     Route: 048
     Dates: start: 202101
  2. NOXAFIL [Suspect]
     Active Substance: POSACONAZOLE
     Indication: CYTOMEGALOVIRUS INFECTION
  3. NOXAFIL [Suspect]
     Active Substance: POSACONAZOLE
     Indication: COCCIDIOIDOMYCOSIS

REACTIONS (5)
  - Product distribution issue [Unknown]
  - Fatigue [Unknown]
  - Product dose omission issue [Unknown]
  - Incorrect dose administered [Unknown]
  - Product dose omission issue [Unknown]

NARRATIVE: CASE EVENT DATE: 2021
